FAERS Safety Report 9191384 (Version 1)
Quarter: 2013Q1

REPORT INFORMATION
  Report Type: Spontaneous
  Country: US (occurrence: US)
  Receive Date: 20130326
  Receipt Date: 20130326
  Transmission Date: 20140127
  Serious: No
  Sender: FDA-Public Use
  Company Number: US-JNJFOC-20130113141

PATIENT
  Sex: Female
  Weight: 74.84 kg

DRUGS (9)
  1. INVEGA [Suspect]
     Indication: BIPOLAR DISORDER
     Route: 048
     Dates: start: 2012
  2. INVEGA SUSTENNA [Suspect]
     Indication: BIPOLAR DISORDER
     Route: 030
     Dates: start: 2012
  3. TOPAMAX [Suspect]
     Indication: MOOD SWINGS
     Route: 048
  4. TOPAMAX [Suspect]
     Indication: MOOD SWINGS
     Route: 048
  5. TOPAMAX [Suspect]
     Indication: MOOD SWINGS
     Route: 048
  6. TOPAMAX [Suspect]
     Indication: MOOD SWINGS
     Route: 048
  7. TOPAMAX [Suspect]
     Indication: MOOD SWINGS
     Route: 048
     Dates: start: 2012
  8. SEROQUEL [Concomitant]
     Route: 065
     Dates: start: 2012
  9. KLONOPIN [Concomitant]
     Route: 065
     Dates: start: 2012

REACTIONS (2)
  - Adverse event [Unknown]
  - Rash [Not Recovered/Not Resolved]
